FAERS Safety Report 4840167-4 (Version None)
Quarter: 2005Q4

REPORT INFORMATION
  Report Type: 
  Country: None (occurrence: None)
  Receive Date: 20051125
  Receipt Date: 20051114
  Transmission Date: 20060501
  Serious: Yes (Life-Threatening, Other)
  Sender: FDA-Public Use
  Company Number: 0205046

PATIENT
  Age: 65 Year
  Sex: Female
  Weight: 79 kg

DRUGS (7)
  1. DEPODUR [Suspect]
     Indication: POSTOPERATIVE ANALGESIA
     Dosage: 10 MG (ONCE), EPIDURAL
     Route: 008
     Dates: start: 20050829, end: 20050829
  2. PRAVACHOL [Concomitant]
  3. MIDAZOLAM HCL [Concomitant]
  4. FENTANYL [Concomitant]
  5. PROPOFOL [Concomitant]
  6. DESFLURANE (DESFLURANE) [Concomitant]
  7. OXYGEN (OXYGEN) [Concomitant]

REACTIONS (6)
  - CARDIAC ARREST [None]
  - HYPOTENSION [None]
  - LOSS OF CONSCIOUSNESS [None]
  - POST PROCEDURAL COMPLICATION [None]
  - RESPIRATORY DEPRESSION [None]
  - SINUS BRADYCARDIA [None]
